FAERS Safety Report 24764564 (Version 1)
Quarter: 2024Q4

REPORT INFORMATION
  Report Type: Report from Study
  Country: RO (occurrence: RO)
  Receive Date: 20241223
  Receipt Date: 20241223
  Transmission Date: 20250115
  Serious: Yes (Hospitalization, Other)
  Sender: ABBVIE
  Company Number: RO-ABBVIE-6052671

PATIENT
  Age: 69 Year
  Sex: Female

DRUGS (3)
  1. GLECAPREVIR\PIBRENTASVIR [Suspect]
     Active Substance: GLECAPREVIR\PIBRENTASVIR
     Indication: Hepatic cirrhosis
     Dosage: 300 MG/ 120 MG
     Route: 048
     Dates: start: 20240805, end: 20240929
  2. NASONEX [Concomitant]
     Active Substance: MOMETASONE FUROATE
     Indication: Temperature intolerance
     Dosage: 2 PUFF WHEN NEEDED?START DATE TEXT: PRIOR MAVIRET THERAPY
     Route: 055
  3. ENTRESTO [Concomitant]
     Active Substance: SACUBITRIL\VALSARTAN
     Indication: Cardiac disorder
     Dosage: START DATE TEXT: DURING MAVIRET TREATMENT?2 TABLET
     Route: 048

REACTIONS (2)
  - Infarction [Recovered/Resolved]
  - Pruritus [Not Recovered/Not Resolved]

NARRATIVE: CASE EVENT DATE: 20240101
